FAERS Safety Report 7630603-2 (Version None)
Quarter: 2011Q3

REPORT INFORMATION
  Report Type: 
  Country: None (occurrence: None)
  Receive Date: 20110722
  Receipt Date: 20110711
  Transmission Date: 20111222
  Serious: Yes (Hospitalization)
  Sender: FDA-Public Use
  Company Number: US-ELI_LILLY_AND_COMPANY-US201107002993

PATIENT
  Age: 87 Year
  Sex: Female

DRUGS (1)
  1. HUMULIN 70/30 [Suspect]
     Dosage: UNK, UNKNOWN
     Dates: start: 19910101

REACTIONS (2)
  - MYOCARDIAL INFARCTION [None]
  - BLOOD GLUCOSE DECREASED [None]
